FAERS Safety Report 5537000-4 (Version None)
Quarter: 2007Q4

REPORT INFORMATION
  Report Type: 
  Country: None (occurrence: None)
  Receive Date: 20071207
  Receipt Date: 20071127
  Transmission Date: 20080405
  Serious: Yes (Other)
  Sender: FDA-Public Use
  Company Number: US-JNJFOC-20070901859

PATIENT
  Sex: Female
  Weight: 67.59 kg

DRUGS (9)
  1. FENTANYL TRANSDERMAL SYSTEM [Suspect]
     Indication: PAIN
     Route: 062
  2. FENTANYL TRANSDERMAL SYSTEM [Suspect]
     Indication: PAIN
     Route: 062
  3. DURAGESIC-100 [Suspect]
     Indication: FIBROMYALGIA
     Route: 062
  4. EFFEXOR XR [Concomitant]
     Indication: DEPRESSION
     Route: 048
  5. BOWEL MEDICATION [Concomitant]
     Indication: CONSTIPATION
     Route: 048
  6. SINEMET [Concomitant]
     Indication: PARKINSON'S DISEASE
     Dosage: 50/200MG
     Route: 048
  7. ALPRAZOLAM [Concomitant]
     Indication: ANXIETY
     Dosage: AS NEEDED
     Route: 065
  8. VICODIN [Concomitant]
     Indication: PAIN
     Dosage: 5/500 AS NEEDED
     Route: 065
  9. TRAZODONE HCL [Concomitant]
     Indication: INSOMNIA
     Route: 065

REACTIONS (8)
  - ANXIETY [None]
  - CYSTITIS INTERSTITIAL [None]
  - DIZZINESS [None]
  - DRUG EFFECT INCREASED [None]
  - FATIGUE [None]
  - NAUSEA [None]
  - PAIN [None]
  - THYROID DISORDER [None]
